FAERS Safety Report 23401591 (Version 1)
Quarter: 2024Q1

REPORT INFORMATION
  Report Type: Spontaneous
  Country: GB (occurrence: GB)
  Receive Date: 20240115
  Receipt Date: 20240115
  Transmission Date: 20240410
  Serious: Yes (Hospitalization)
  Sender: FDA-Public Use
  Company Number: None

PATIENT
  Age: 60 Year

DRUGS (7)
  1. ANASTROZOLE [Suspect]
     Active Substance: ANASTROZOLE
     Indication: Product used for unknown indication
     Route: 065
  2. TEGRETOL [Concomitant]
     Active Substance: CARBAMAZEPINE
     Dosage: 100MG TABLETS ONE TABLET TWICE DAILY AND ONE AND A HALF TABLETS AT NIGHT
  3. ALBUTEROL [Concomitant]
     Active Substance: ALBUTEROL
     Dosage: TIME INTERVAL: AS NECESSARY: ONE OR TWO PUFFS TO BE INHALED FOUR TIMES A DAY WHEN?REQUIRED , 100M...
     Route: 055
  4. CHOLECALCIFEROL [Concomitant]
     Active Substance: CHOLECALCIFEROL
     Dosage: 20,000UNIT. EXPIRY 12/23
  5. SERETIDE [Concomitant]
     Active Substance: FLUTICASONE PROPIONATE\SALMETEROL XINAFOATE
     Dosage: 250 ACUHALER
     Route: 055
  6. CARBAMAZEPINE [Concomitant]
     Active Substance: CARBAMAZEPINE
     Dates: start: 20231222
  7. LEVOTHYROXINE [Concomitant]
     Active Substance: LEVOTHYROXINE

REACTIONS (1)
  - Femur fracture [Recovered/Resolved]
